FAERS Safety Report 17471372 (Version 1)
Quarter: 2020Q1

REPORT INFORMATION
  Report Type: Report from Study
  Country: None (occurrence: CA)
  Receive Date: 20200227
  Receipt Date: 20200227
  Transmission Date: 20200409
  Serious: Yes (Hospitalization, Other)
  Sender: FDA-Public Use
  Company Number: CA-ABBVIE-20K-028-3290505-00

PATIENT
  Sex: Female

DRUGS (2)
  1. AZATHIOPRINE. [Concomitant]
     Active Substance: AZATHIOPRINE
     Indication: UVEITIS
  2. HUMIRA [Suspect]
     Active Substance: ADALIMUMAB
     Indication: UVEITIS
     Route: 058
     Dates: start: 20190426, end: 20191030

REACTIONS (7)
  - Ovarian cyst [Unknown]
  - Salpingectomy [Unknown]
  - Abscess [Unknown]
  - Malaise [Unknown]
  - Appendicectomy [Unknown]
  - Diverticulitis [Unknown]
  - Appendicitis [Unknown]

NARRATIVE: CASE EVENT DATE: 2019
